FAERS Safety Report 23592810 (Version 1)
Quarter: 2024Q1

REPORT INFORMATION
  Report Type: Spontaneous
  Country: AU (occurrence: AU)
  Receive Date: 20240304
  Receipt Date: 20240304
  Transmission Date: 20240409
  Serious: Yes (Other)
  Sender: FDA-Public Use
  Company Number: AU-GILEAD-2024-0663996

PATIENT
  Age: 38 Year
  Sex: Female

DRUGS (4)
  1. YESCARTA [Suspect]
     Active Substance: AXICABTAGENE CILOLEUCEL
     Indication: Richter^s syndrome
     Dosage: UNK
     Route: 065
     Dates: start: 20221012
  2. FLUDARABINE [Concomitant]
     Active Substance: FLUDARABINE PHOSPHATE
  3. CYCLOPHOSPHAMIDE [Concomitant]
     Active Substance: CYCLOPHOSPHAMIDE
  4. IBRUTINIB [Concomitant]
     Active Substance: IBRUTINIB
     Dosage: RESTARTED POST LD AT 140MG DAILY

REACTIONS (5)
  - Fungaemia [Unknown]
  - Bronchopulmonary aspergillosis [Unknown]
  - Septic shock [Unknown]
  - Cytokine release syndrome [Unknown]
  - Immune effector cell-associated neurotoxicity syndrome [Unknown]
